FAERS Safety Report 5684230-7 (Version None)
Quarter: 2008Q1

REPORT INFORMATION
  Report Type: 
  Country: None (occurrence: None)
  Receive Date: 20080328
  Receipt Date: 20071203
  Transmission Date: 20080703
  Serious: No
  Sender: FDA-Public Use
  Company Number: US-AMGEN-KDL255116

PATIENT
  Sex: Female

DRUGS (10)
  1. NEULASTA [Suspect]
     Indication: CHEMOTHERAPY
     Route: 058
     Dates: start: 20071015
  2. NEUPOGEN [Suspect]
  3. ADRIAMYCIN PFS [Concomitant]
  4. CYTOXAN [Concomitant]
  5. COMPAZINE [Concomitant]
  6. ATIVAN [Concomitant]
  7. HALDOL [Concomitant]
  8. ZOFRAN [Concomitant]
  9. SCOPOLAMINE [Concomitant]
  10. EMEND [Concomitant]

REACTIONS (1)
  - NEUTROPENIA [None]
